FAERS Safety Report 4388533-8 (Version None)
Quarter: 2004Q2

REPORT INFORMATION
  Report Type: 
  Country: None (occurrence: None)
  Receive Date: 20040625
  Receipt Date: 20040615
  Transmission Date: 20050107
  Serious: Yes (Death)
  Sender: FDA-Public Use
  Company Number: JP-JNJFOC-20040604344

PATIENT
  Age: 81 Year
  Sex: Male

DRUGS (9)
  1. FENTANYL [Suspect]
     Indication: CANCER PAIN
     Dosage: 2.5 MG, 1 IN 72 HOUR, TRANSDERMAL;  5 MG, 1 IN 72 HOUR, TRANSDERMAL
     Route: 062
     Dates: start: 20040510, end: 20040513
  2. FENTANYL [Suspect]
     Indication: CANCER PAIN
     Dosage: 2.5 MG, 1 IN 72 HOUR, TRANSDERMAL;  5 MG, 1 IN 72 HOUR, TRANSDERMAL
     Route: 062
     Dates: start: 20040513, end: 20040517
  3. CEFOZOPRAN HYDROCHLORIDE (CEFOZOPRAN HYDROCHLORIDE) [Concomitant]
  4. MORPHINE [Concomitant]
  5. PIPERACILLIN SODIUM [Concomitant]
  6. METOCLOPRAMIDE [Concomitant]
  7. PANTETHINE (PANTETHINE) [Concomitant]
  8. DIFLUCAN [Concomitant]
  9. SULPYRINE (METAMIZOLE SODIUM) [Concomitant]

REACTIONS (1)
  - DEATH [None]
